FAERS Safety Report 18438821 (Version 1)
Quarter: 2020Q4

REPORT INFORMATION
  Report Type: Spontaneous
  Country: US (occurrence: US)
  Receive Date: 20201029
  Receipt Date: 20201029
  Transmission Date: 20210114
  Serious: No
  Sender: FDA-Public Use
  Company Number: US-ASTRAZENECA-2008BM15557

PATIENT
  Sex: Male

DRUGS (5)
  1. EXENATIDE 10MCG PEN, DISPOSABLE DEVICE [Concomitant]
     Active Substance: EXENATIDE
  2. BYETTA [Suspect]
     Active Substance: EXENATIDE
     Dosage: 5.0UG UNKNOWN
     Route: 058
     Dates: start: 2008, end: 2008
  3. BYETTA [Suspect]
     Active Substance: EXENATIDE
     Route: 058
     Dates: start: 2008, end: 2008
  4. BYETTA [Suspect]
     Active Substance: EXENATIDE
     Dosage: 10.0UG UNKNOWN
     Route: 058
     Dates: start: 20081103
  5. BYETTA [Suspect]
     Active Substance: EXENATIDE
     Dosage: 10.0UG UNKNOWN
     Route: 058
     Dates: start: 2008, end: 2008

REACTIONS (5)
  - Weight increased [Unknown]
  - Device malfunction [Unknown]
  - Device leakage [Unknown]
  - Injection site nodule [Unknown]
  - Dizziness [Unknown]

NARRATIVE: CASE EVENT DATE: 2008
